FAERS Safety Report 16500176 (Version 3)
Quarter: 2019Q3

REPORT INFORMATION
  Report Type: Report from Study
  Country: US (occurrence: US)
  Receive Date: 20190701
  Receipt Date: 20190806
  Transmission Date: 20191004
  Serious: Yes (Death, Hospitalization, Disabling, Other)
  Sender: FDA-Public Use
  Company Number: US-GILEAD-2019-0415939

PATIENT
  Age: 73 Year
  Sex: Female

DRUGS (17)
  1. FERROUS SULFATE. [Concomitant]
     Active Substance: FERROUS SULFATE
  2. VITAMIN D3 [Concomitant]
     Active Substance: CHOLECALCIFEROL
  3. LEVOTHYROXINE. [Concomitant]
     Active Substance: LEVOTHYROXINE
  4. GLIPIZIDE. [Concomitant]
     Active Substance: GLIPIZIDE
  5. AMLODIPINE [Concomitant]
     Active Substance: AMLODIPINE BESYLATE
  6. ALLOPURINOL. [Concomitant]
     Active Substance: ALLOPURINOL
  7. ATORVASTATIN [Concomitant]
     Active Substance: ATORVASTATIN
  8. AMBRISENTAN [Suspect]
     Active Substance: AMBRISENTAN
     Indication: PRODUCT USED FOR UNKNOWN INDICATION
     Dosage: 5 MG
     Route: 048
     Dates: start: 20190426
  9. TADALAFIL. [Concomitant]
     Active Substance: TADALAFIL
  10. FISH OIL [Concomitant]
     Active Substance: FISH OIL
  11. LASIX [Concomitant]
     Active Substance: FUROSEMIDE
  12. KLOR-CON [Concomitant]
     Active Substance: POTASSIUM CHLORIDE
  13. ASPIRIN 81 [Concomitant]
     Active Substance: ASPIRIN
  14. NOVOLOG [Concomitant]
     Active Substance: INSULIN ASPART
  15. LEVEMIR [Concomitant]
     Active Substance: INSULIN DETEMIR
  16. WELLBUTRIN [Concomitant]
     Active Substance: BUPROPION HYDROCHLORIDE
  17. CARVEDILOL. [Concomitant]
     Active Substance: CARVEDILOL

REACTIONS (3)
  - Left ventricular failure [Not Recovered/Not Resolved]
  - Acute kidney injury [Not Recovered/Not Resolved]
  - Tracheostomy malfunction [Fatal]

NARRATIVE: CASE EVENT DATE: 20190526
